FAERS Safety Report 9203454 (Version 2)
Quarter: 2013Q2

REPORT INFORMATION
  Report Type: Spontaneous
  Country: US (occurrence: US)
  Receive Date: 20130402
  Receipt Date: 20130417
  Transmission Date: 20140414
  Serious: No
  Sender: FDA-Public Use
  Company Number: US-PFIZER INC-2013103332

PATIENT
  Sex: Male

DRUGS (1)
  1. NICOTROL INHALER [Suspect]
     Dosage: UNK

REACTIONS (3)
  - Physical product label issue [Unknown]
  - Product quality issue [Unknown]
  - Throat irritation [Unknown]
